FAERS Safety Report 23127048 (Version 2)
Quarter: 2023Q4

REPORT INFORMATION
  Report Type: Report from Study
  Country: US (occurrence: US)
  Receive Date: 20231030
  Receipt Date: 20231116
  Transmission Date: 20240110
  Serious: Yes (Hospitalization)
  Sender: FDA-Public Use
  Company Number: US-PFIZER INC-PV202300178249

PATIENT
  Age: 38 Year
  Sex: Male
  Weight: 69.1 kg

DRUGS (8)
  1. XALKORI [Suspect]
     Active Substance: CRIZOTINIB
     Indication: Choroid melanoma
     Dosage: 200 MG
     Route: 048
     Dates: start: 20230726
  2. DAROVASERTIB [Suspect]
     Active Substance: DAROVASERTIB
     Indication: Choroid melanoma
     Dosage: 200 MILLIGRAM
     Route: 048
     Dates: start: 20230718
  3. ALPRAZOLAM [Concomitant]
     Active Substance: ALPRAZOLAM
     Dosage: UNK
     Dates: start: 20211026
  4. OMEPRAZOLE [Concomitant]
     Active Substance: OMEPRAZOLE
     Dosage: UNK
     Dates: start: 20231009
  5. COMPAZINE [Concomitant]
     Active Substance: PROCHLORPERAZINE MALEATE
     Dosage: UNK
     Dates: start: 20230621
  6. ZOFRAN [Concomitant]
     Active Substance: ONDANSETRON HYDROCHLORIDE
     Dosage: UNK
     Dates: start: 20230621
  7. TRIAMCINOLONE [Concomitant]
     Active Substance: TRIAMCINOLONE
     Dosage: UNK
     Dates: start: 20230814
  8. DYNACIN [CLINDAMYCIN HYDROCHLORIDE] [Concomitant]
     Dosage: UNK
     Dates: start: 20230829

REACTIONS (1)
  - Gastrooesophageal reflux disease [Recovered/Resolved]

NARRATIVE: CASE EVENT DATE: 20231010
